FAERS Safety Report 12917156 (Version 1)
Quarter: 2016Q4

REPORT INFORMATION
  Report Type: Spontaneous
  Country: US (occurrence: US)
  Receive Date: 20161107
  Receipt Date: 20161107
  Transmission Date: 20170207
  Serious: No
  Sender: FDA-Public Use
  Company Number: US-JAZZ-2016-US-017439

PATIENT
  Sex: Female

DRUGS (57)
  1. NAPROXEN. [Concomitant]
     Active Substance: NAPROXEN
  2. PREDNISONE. [Concomitant]
     Active Substance: PREDNISONE
  3. ROBAXIN [Concomitant]
     Active Substance: METHOCARBAMOL
  4. CLONAZEPAM. [Concomitant]
     Active Substance: CLONAZEPAM
  5. VOLTAREN [Concomitant]
     Active Substance: DICLOFENAC SODIUM
  6. HYDROMORPHONE HCL [Concomitant]
     Active Substance: HYDROMORPHONE HYDROCHLORIDE
  7. PSYLLIUM HUSK [Concomitant]
     Active Substance: PSYLLIUM HUSK
  8. HYDROCODONE/ACETAMINOPHEN [Concomitant]
     Active Substance: ACETAMINOPHEN\HYDROCODONE
  9. BENADRYL ALLERGY [Concomitant]
     Active Substance: DIPHENHYDRAMINE HYDROCHLORIDE
  10. MIRALAX [Concomitant]
     Active Substance: POLYETHYLENE GLYCOL 3350
  11. VITAMIN C [Concomitant]
     Active Substance: ASCORBIC ACID
  12. DIPHENOXYLATE/ATROPINE [Concomitant]
     Active Substance: ATROPINE\DIPHENOXYLATE
  13. TRAMADOL HCL [Suspect]
     Active Substance: TRAMADOL HYDROCHLORIDE
     Indication: PRODUCT USED FOR UNKNOWN INDICATION
  14. SENNA LAXATIVE [Concomitant]
     Active Substance: SENNOSIDES
  15. SODIUM CHLORIDE. [Concomitant]
     Active Substance: SODIUM CHLORIDE
  16. TIZANIDINE HCL [Concomitant]
     Active Substance: TIZANIDINE HYDROCHLORIDE
  17. CROMOLYN [Concomitant]
     Active Substance: CROMOLYN
  18. LEXAPRO [Concomitant]
     Active Substance: ESCITALOPRAM OXALATE
  19. PRIMIDONE. [Concomitant]
     Active Substance: PRIMIDONE
  20. MOBIC [Concomitant]
     Active Substance: MELOXICAM
  21. ERGOCALCIFEROL. [Concomitant]
     Active Substance: ERGOCALCIFEROL
  22. OXYCODONE AND ACETAMINOPHEN [Concomitant]
     Active Substance: ACETAMINOPHEN\OXYCODONE HYDROCHLORIDE
  23. MAXALT [Concomitant]
     Active Substance: RIZATRIPTAN BENZOATE
  24. NIZORAL [Concomitant]
     Active Substance: KETOCONAZOLE
  25. XYREM [Suspect]
     Active Substance: SODIUM OXYBATE
     Indication: CATAPLEXY
     Dosage: DOSE ADJUSTMENTS
     Route: 048
     Dates: start: 200710, end: 201310
  26. XYREM [Suspect]
     Active Substance: SODIUM OXYBATE
     Dosage: UNKNOWN DOSE
     Route: 048
     Dates: start: 2016
  27. CROMOLYN SODIUM. [Concomitant]
     Active Substance: CROMOLYN SODIUM
  28. LOMOTIL [Concomitant]
     Active Substance: ATROPINE SULFATE\DIPHENOXYLATE HYDROCHLORIDE
  29. OSCIMIN [Concomitant]
     Active Substance: HYOSCYAMINE SULFATE
  30. ZEBETA [Concomitant]
     Active Substance: BISOPROLOL FUMARATE
  31. MESTINON [Concomitant]
     Active Substance: PYRIDOSTIGMINE BROMIDE
  32. XANAX [Concomitant]
     Active Substance: ALPRAZOLAM
  33. GABAPENTIN. [Concomitant]
     Active Substance: GABAPENTIN
  34. WELCHOL [Concomitant]
     Active Substance: COLESEVELAM HYDROCHLORIDE
  35. FLUDROCORTISONE [Concomitant]
     Active Substance: FLUDROCORTISONE
  36. MICROGESTIN FE [Concomitant]
     Active Substance: ETHINYL ESTRADIOL\FERROUS FUMARATE\NORETHINDRONE ACETATE
  37. XYREM [Suspect]
     Active Substance: SODIUM OXYBATE
     Indication: NARCOLEPSY
     Dosage: 3.75 G, BID
     Route: 048
     Dates: start: 200406, end: 200710
  38. MODAFINIL. [Concomitant]
     Active Substance: MODAFINIL
  39. BUSPAR [Concomitant]
     Active Substance: BUSPIRONE HYDROCHLORIDE
  40. LOTRONEX [Concomitant]
     Active Substance: ALOSETRON HYDROCHLORIDE
  41. DULOXETINE HCL [Concomitant]
     Active Substance: DULOXETINE HYDROCHLORIDE
  42. KETOCONAZOLE. [Concomitant]
     Active Substance: KETOCONAZOLE
  43. SUMATRIPTAN. [Concomitant]
     Active Substance: SUMATRIPTAN
  44. CYCLOBENZAPRINE [Concomitant]
     Active Substance: CYCLOBENZAPRINE
  45. PROTONIX [Concomitant]
     Active Substance: PANTOPRAZOLE SODIUM
  46. DIAZEPAM. [Concomitant]
     Active Substance: DIAZEPAM
  47. XYREM [Suspect]
     Active Substance: SODIUM OXYBATE
     Dosage: 4.5 G, BID
     Route: 048
     Dates: start: 201310, end: 201602
  48. LAMOTRIGINE. [Concomitant]
     Active Substance: LAMOTRIGINE
  49. ONDANSETRON HCL [Concomitant]
     Active Substance: ONDANSETRON HYDROCHLORIDE
  50. FENTANYL. [Concomitant]
     Active Substance: FENTANYL
  51. BUTRANS [Concomitant]
     Active Substance: BUPRENORPHINE
  52. IMITREX [Concomitant]
     Active Substance: SUMATRIPTAN SUCCINATE
  53. PERCOCET [Concomitant]
     Active Substance: ACETAMINOPHEN\OXYCODONE HYDROCHLORIDE
  54. BISOPROLOL FUMARATE. [Concomitant]
     Active Substance: BISOPROLOL FUMARATE
  55. MORPHINE SULF [Concomitant]
     Active Substance: MORPHINE SULFATE
  56. FLORINEF ACETATE [Concomitant]
     Active Substance: FLUDROCORTISONE ACETATE
  57. PYRIDOSTIGMINE BROMIDE. [Concomitant]
     Active Substance: PYRIDOSTIGMINE BROMIDE

REACTIONS (3)
  - Drug ineffective [Unknown]
  - Vomiting [Unknown]
  - Malaise [Unknown]
